FAERS Safety Report 24848118 (Version 2)
Quarter: 2025Q1

REPORT INFORMATION
  Report Type: Report from Study
  Country: US (occurrence: US)
  Receive Date: 20250116
  Receipt Date: 20250123
  Transmission Date: 20250408
  Serious: No
  Sender: NOVARTIS
  Company Number: US-002147023-NVSC2025US006372

PATIENT
  Sex: Female

DRUGS (2)
  1. ILARIS [Suspect]
     Active Substance: CANAKINUMAB
     Indication: Cryopyrin associated periodic syndrome
     Route: 065
  2. ILARIS [Suspect]
     Active Substance: CANAKINUMAB
     Route: 058
     Dates: start: 20200327

REACTIONS (2)
  - Malaise [Unknown]
  - Inappropriate schedule of product administration [Unknown]
